FAERS Safety Report 8298021-4 (Version None)
Quarter: 2012Q2

REPORT INFORMATION
  Report Type: 
  Country: None (occurrence: None)
  Receive Date: 20120419
  Receipt Date: 20120411
  Transmission Date: 20120825
  Serious: Yes (Other)
  Sender: FDA-Public Use
  Company Number: US-BAYER-2012-012966

PATIENT
  Age: 45 Year
  Sex: Female

DRUGS (1)
  1. MIRENA [Suspect]
     Indication: CONTRACEPTION
     Dosage: 20 MCG/24HR, CONT
     Route: 015
     Dates: start: 20120202, end: 20120206

REACTIONS (6)
  - PAIN [None]
  - DISTURBANCE IN ATTENTION [None]
  - DEVICE EXPULSION [None]
  - MEDICAL DEVICE DISCOMFORT [None]
  - VAGINAL HAEMORRHAGE [None]
  - ABDOMINAL PAIN [None]
